FAERS Safety Report 23134048 (Version 2)
Quarter: 2023Q4

REPORT INFORMATION
  Report Type: Report from Study
  Country: US (occurrence: US)
  Receive Date: 20231101
  Receipt Date: 20231206
  Transmission Date: 20240110
  Serious: Yes (Hospitalization, Other)
  Sender: FDA-Public Use
  Company Number: US-ABBVIE-5470996

PATIENT
  Sex: Female

DRUGS (2)
  1. SKYRIZI [Suspect]
     Active Substance: RISANKIZUMAB-RZAA
     Indication: Crohn^s disease
     Route: 058
     Dates: start: 202305
  2. SKYRIZI [Suspect]
     Active Substance: RISANKIZUMAB-RZAA
     Indication: Colitis ulcerative
     Dosage: LAST ADMIN DATE: 2023
     Route: 058
     Dates: start: 20230217

REACTIONS (8)
  - Intestinal obstruction [Recovering/Resolving]
  - Postoperative wound infection [Recovered/Resolved]
  - Hypophagia [Unknown]
  - Off label use [Recovering/Resolving]
  - Therapeutic response shortened [Unknown]
  - Colectomy [Recovering/Resolving]
  - Unevaluable event [Unknown]
  - Staphylococcal infection [Recovered/Resolved]

NARRATIVE: CASE EVENT DATE: 20230101
